FAERS Safety Report 7543341-1 (Version None)
Quarter: 2011Q2

REPORT INFORMATION
  Report Type: 
  Country: None (occurrence: None)
  Receive Date: 20110524
  Receipt Date: 20110224
  Transmission Date: 20111010
  Serious: No
  Sender: FDA-Public Use
  Company Number: 023752

PATIENT
  Sex: Male
  Weight: 77.1 kg

DRUGS (8)
  1. DILAUDID [Concomitant]
  2. METHOTREXATE [Concomitant]
  3. CIMZIA [Suspect]
     Indication: CROHN'S DISEASE
     Dosage: (2 INJECTION EVERY 2 WEEKS SUBCUTANEOUS) ; (2 SHOTS SUBCUTANEOUS) ; (SUBCUTANEOUS)
     Route: 058
     Dates: start: 20100601
  4. CIMZIA [Suspect]
     Indication: CROHN'S DISEASE
     Dosage: (2 INJECTION EVERY 2 WEEKS SUBCUTANEOUS) ; (2 SHOTS SUBCUTANEOUS) ; (SUBCUTANEOUS)
     Route: 058
     Dates: start: 20091201
  5. CIMZIA [Suspect]
  6. NAMENDA [Concomitant]
  7. MS CONTIN [Concomitant]
  8. FOLIC ACID [Concomitant]

REACTIONS (11)
  - FATIGUE [None]
  - CHILLS [None]
  - STRESS [None]
  - ANGER [None]
  - ANAL STENOSIS [None]
  - BOWEL MOVEMENT IRREGULARITY [None]
  - PAIN [None]
  - MEMORY IMPAIRMENT [None]
  - RESTLESSNESS [None]
  - ASTHENIA [None]
  - PYREXIA [None]
